FAERS Safety Report 9413695 (Version 1)
Quarter: 2013Q3

REPORT INFORMATION
  Report Type: Spontaneous
  Country: None (occurrence: None)
  Receive Date: 20130708
  Receipt Date: 20130708
  Transmission Date: 20140515
  Serious: Yes (Disabling)
  Sender: FDA-Public Use
  Company Number: 08-AUR-05433

PATIENT
  Age: 72 Year
  Sex: Female
  Weight: 38 kg

DRUGS (2)
  1. ALENDRONIC ACID [Suspect]
     Indication: OSTEOPOROSIS
  2. CALCIUM (CALCIUM) [Concomitant]

REACTIONS (5)
  - Pain [None]
  - Hip deformity [None]
  - Fall [None]
  - Gait disturbance [None]
  - Femur fracture [None]
